FAERS Safety Report 21042306 (Version 1)
Quarter: 2022Q3

REPORT INFORMATION
  Report Type: Other
  Country: IT (occurrence: None)
  Receive Date: 20220705
  Receipt Date: 20220705
  Transmission Date: 20221027
  Serious: No
  Sender: FDA-Public Use
  Company Number: IT-ROCHE-3132311

PATIENT
  Age: 53 Year
  Sex: Female

DRUGS (2)
  1. OCRELIZUMAB [Suspect]
     Active Substance: OCRELIZUMAB
     Indication: Multiple sclerosis
     Dosage: ON 17/SEP/2021, SHE RECEIVED MOST RECENT DOSE OF OCRELIZUMAB (6 INFUSIONS)
     Route: 042
  2. COMIRNATY [Concomitant]
     Active Substance: TOZINAMERAN
     Indication: COVID-19

REACTIONS (3)
  - Vaccination failure [Unknown]
  - Drug interaction [Unknown]
  - COVID-19 [Recovered/Resolved]

NARRATIVE: CASE EVENT DATE: 20220122
